FAERS Safety Report 8284469-0 (Version None)
Quarter: 2012Q2

REPORT INFORMATION
  Report Type: 
  Country: None (occurrence: None)
  Receive Date: 20120413
  Receipt Date: 20120126
  Transmission Date: 20120825
  Serious: No
  Sender: FDA-Public Use
  Company Number: US-ASTRAZENECA-2012SE00055

PATIENT
  Age: 48 Year
  Sex: Male

DRUGS (3)
  1. BOCEPREVIR [Concomitant]
  2. NEXIUM [Suspect]
     Route: 048
  3. HEPATITIS C MEDICATION [Suspect]

REACTIONS (5)
  - INSOMNIA [None]
  - GLOSSITIS [None]
  - DIARRHOEA [None]
  - ABDOMINAL DISCOMFORT [None]
  - DRUG DOSE OMISSION [None]
